FAERS Safety Report 19213307 (Version 2)
Quarter: 2021Q4

REPORT INFORMATION
  Report Type: Spontaneous
  Country: FR (occurrence: FR)
  Receive Date: 20210504
  Receipt Date: 20211228
  Transmission Date: 20220303
  Serious: Yes (Hospitalization, Other)
  Sender: FDA-Public Use
  Company Number: FR-NOVARTISPH-NVSC2021FR099359

PATIENT
  Age: 65 Year
  Sex: Male

DRUGS (6)
  1. LIFITEGRAST [Suspect]
     Active Substance: LIFITEGRAST
     Indication: Chronic graft versus host disease in eye
     Dosage: UNK, BID
     Route: 061
     Dates: start: 20200114
  2. LIFITEGRAST [Suspect]
     Active Substance: LIFITEGRAST
     Dosage: UNK, QD
     Route: 065
     Dates: start: 202001
  3. TOBRAMYCIN [Concomitant]
     Active Substance: TOBRAMYCIN
     Indication: Ocular hyperaemia
     Dosage: UNK
     Route: 061
  4. DEXAMETHASONE [Concomitant]
     Active Substance: DEXAMETHASONE
     Indication: Ocular hyperaemia
     Dosage: UNK
     Route: 061
  5. VANCOMYCIN [Concomitant]
     Active Substance: VANCOMYCIN
     Indication: Prophylaxis
     Dosage: UNK
     Route: 031
  6. CEFTAZIDIME [Concomitant]
     Active Substance: CEFTAZIDIME
     Indication: Prophylaxis
     Dosage: UNK
     Route: 031

REACTIONS (3)
  - Corneal perforation [Unknown]
  - Keratitis bacterial [Unknown]
  - Product use in unapproved indication [Unknown]
